FAERS Safety Report 20124675 (Version 3)
Quarter: 2022Q4

REPORT INFORMATION
  Report Type: Spontaneous
  Country: TW (occurrence: TW)
  Receive Date: 20211129
  Receipt Date: 20221012
  Transmission Date: 20230113
  Serious: Yes (Death, Hospitalization, Other)
  Sender: FDA-Public Use
  Company Number: TW-SA-SAC20210819000267

PATIENT
  Age: 40 Year
  Sex: Female

DRUGS (2)
  1. MYOZYME [Suspect]
     Active Substance: ALGLUCOSIDASE ALFA
     Dosage: DOSAGE:20MG/1KG, 50MG/VIAL
     Route: 042
  2. MYOZYME [Suspect]
     Active Substance: ALGLUCOSIDASE ALFA
     Dosage: DOSAGE:20MG/1KG, 50MG/VIAL, QOW
     Route: 041
     Dates: start: 20220401

REACTIONS (9)
  - Respiratory failure [Fatal]
  - Blood pressure decreased [Fatal]
  - Pneumonia [Unknown]
  - Choking [Unknown]
  - Respiratory disorder [Unknown]
  - Disease progression [Unknown]
  - Asthenia [Unknown]
  - Muscle atrophy [Unknown]
  - Inappropriate schedule of product administration [Unknown]

NARRATIVE: CASE EVENT DATE: 20210623
